FAERS Safety Report 8466779-7 (Version None)
Quarter: 2012Q2

REPORT INFORMATION
  Report Type: 
  Country: None (occurrence: None)
  Receive Date: 20120626
  Receipt Date: 20120619
  Transmission Date: 20120825
  Serious: Yes (Hospitalization)
  Sender: FDA-Public Use
  Company Number: US-UCBSA-016208

PATIENT
  Age: 31 Year
  Sex: Female
  Weight: 78.47 kg

DRUGS (11)
  1. PREDNISONE TAB [Concomitant]
     Dates: start: 19970401, end: 20030401
  2. METHOTREXATE [Concomitant]
     Indication: CROHN'S DISEASE
     Dates: start: 20100421, end: 20100601
  3. LISINOPRIL [Concomitant]
     Route: 048
     Dates: start: 20100416
  4. DILAUDID [Concomitant]
     Indication: PAIN
     Dosage: 4 MG PO Q4 HOUR PRN
     Route: 048
  5. PROMETHAZINE [Concomitant]
     Indication: NAUSEA
     Route: 048
  6. CIMZIA [Suspect]
     Indication: CROHN'S DISEASE
     Dosage: 400 MG
     Route: 058
     Dates: start: 20100421, end: 20100101
  7. FOLIC ACID [Concomitant]
     Indication: SKIN ULCER
     Route: 048
     Dates: start: 20100401
  8. PERCOCET [Concomitant]
     Indication: ABDOMINAL PAIN
     Dates: start: 20100501
  9. CYMBALTA [Concomitant]
     Indication: ANXIETY
     Route: 048
     Dates: start: 20090601
  10. PREDNISONE TAB [Concomitant]
     Indication: CROHN'S DISEASE
     Dates: start: 20100701
  11. METHOTREXATE [Concomitant]
     Dates: start: 20010401, end: 20020401

REACTIONS (3)
  - UROSEPSIS [None]
  - CROHN'S DISEASE [None]
  - NEPHROLITHIASIS [None]
